FAERS Safety Report 4296393-9 (Version None)
Quarter: 2004Q1

REPORT INFORMATION
  Report Type: 
  Country: None (occurrence: None)
  Receive Date: 20040213
  Receipt Date: 20040213
  Transmission Date: 20041129
  Serious: Yes (Hospitalization)
  Sender: FDA-Public Use
  Company Number: None

PATIENT
  Sex: Female
  Weight: 95.2554 kg

DRUGS (3)
  1. LIDOCAINE W/ EPINEPHRINE [Suspect]
     Indication: ORAL SURGERY
     Dates: start: 20031027
  2. TYLENOL W/ CODEINE NO. 3 [Concomitant]
  3. ADVIL [Concomitant]

REACTIONS (4)
  - CONJUNCTIVAL HYPERAEMIA [None]
  - HYPERSENSITIVITY [None]
  - RASH [None]
  - THROAT IRRITATION [None]
